FAERS Safety Report 7243886-8 (Version None)
Quarter: 2011Q1

REPORT INFORMATION
  Report Type: 
  Country: None (occurrence: None)
  Receive Date: 20110125
  Receipt Date: 20110117
  Transmission Date: 20110831
  Serious: Yes (Hospitalization)
  Sender: FDA-Public Use
  Company Number: A0908184A

PATIENT
  Sex: Female

DRUGS (1)
  1. RYTHMOL [Suspect]
     Dosage: 225MG UNKNOWN

REACTIONS (6)
  - HEART RATE DECREASED [None]
  - SYNCOPE [None]
  - PERICARDIAL EFFUSION [None]
  - LUNG DISORDER [None]
  - CARDIAC PACEMAKER INSERTION [None]
  - BLOOD PRESSURE ABNORMAL [None]
